FAERS Safety Report 15686270 (Version 1)
Quarter: 2018Q4

REPORT INFORMATION
  Report Type: Spontaneous
  Country: CA (occurrence: CA)
  Receive Date: 20181204
  Receipt Date: 20181204
  Transmission Date: 20190205
  Serious: Yes (Other)
  Sender: FDA-Public Use
  Company Number: CA-ICU MEDICAL, INC.-ICU2018CA00192

PATIENT

DRUGS (10)
  1. MORPHINE SULFATE INJECTION [Suspect]
     Active Substance: MORPHINE SULFATE
     Indication: ROTATOR CUFF SYNDROME
     Route: 065
  2. OXYCODONE HYDROCHLORIDE. [Suspect]
     Active Substance: OXYCODONE HYDROCHLORIDE
     Indication: TENDONITIS
  3. CAFFEINE CITRATE W/CODEINE PHOSPHATE/PARACETA [Suspect]
     Active Substance: ACETAMINOPHEN\CAFFEINE\CODEINE PHOSPHATE
     Indication: ROTATOR CUFF SYNDROME
     Route: 065
  4. PERCOCET                           /00446701/ [Suspect]
     Active Substance: ACETAMINOPHEN\OXYCODONE HYDROCHLORIDE\OXYCODONE TEREPHTHALATE
     Indication: TENDONITIS
  5. OXYCODONE HYDROCHLORIDE. [Suspect]
     Active Substance: OXYCODONE HYDROCHLORIDE
     Indication: ROTATOR CUFF SYNDROME
     Route: 065
  6. MORPHINE SULFATE INJECTION [Suspect]
     Active Substance: MORPHINE SULFATE
     Indication: TENDONITIS
  7. FENTANYL. [Suspect]
     Active Substance: FENTANYL
     Indication: TENDONITIS
  8. FENTANYL. [Suspect]
     Active Substance: FENTANYL
     Indication: ROTATOR CUFF SYNDROME
     Route: 065
  9. CAFFEINE CITRATE W/CODEINE PHOSPHATE/PARACETA [Suspect]
     Active Substance: ACETAMINOPHEN\CAFFEINE\CODEINE PHOSPHATE
     Indication: TENDONITIS
  10. PERCOCET                           /00446701/ [Suspect]
     Active Substance: ACETAMINOPHEN\OXYCODONE HYDROCHLORIDE\OXYCODONE TEREPHTHALATE
     Indication: ROTATOR CUFF SYNDROME
     Route: 065

REACTIONS (2)
  - Drug dependence [Unknown]
  - Drug diversion [Unknown]
